FAERS Safety Report 11699648 (Version 2)
Quarter: 2015Q4

REPORT INFORMATION
  Report Type: Spontaneous
  Country: US (occurrence: US)
  Receive Date: 20151105
  Receipt Date: 20151105
  Transmission Date: 20160304
  Serious: Yes (Other)
  Sender: FDA-Public Use
  Company Number: CHPA2015US013072

PATIENT
  Age: 84 Year
  Sex: Male

DRUGS (2)
  1. VOLTAREN [Suspect]
     Active Substance: DICLOFENAC SODIUM
     Dosage: UNK
     Route: 061
  2. VOLTAREN [Suspect]
     Active Substance: DICLOFENAC SODIUM
     Indication: NECK INJURY
     Dosage: UNK
     Route: 061
     Dates: start: 2015, end: 2015

REACTIONS (4)
  - Neck injury [Unknown]
  - Drug administered at inappropriate site [Unknown]
  - Product use issue [Unknown]
  - Arthropathy [Unknown]

NARRATIVE: CASE EVENT DATE: 2015
